FAERS Safety Report 6688186-X (Version None)
Quarter: 2010Q2

REPORT INFORMATION
  Report Type: 
  Country: None (occurrence: None)
  Receive Date: 20100420
  Receipt Date: 20100409
  Transmission Date: 20101027
  Serious: Yes (Other)
  Sender: FDA-Public Use
  Company Number: TW-PFIZER INC-2010045361

PATIENT
  Sex: Male

DRUGS (2)
  1. SUTENT [Suspect]
     Indication: GASTROINTESTINAL STROMAL TUMOUR
  2. RAD 001 [Concomitant]
     Indication: GASTROINTESTINAL STROMAL TUMOUR

REACTIONS (1)
  - HYPOKINESIA [None]
